FAERS Safety Report 6262047-2 (Version None)
Quarter: 2009Q3

REPORT INFORMATION
  Report Type: 
  Country: None (occurrence: None)
  Receive Date: 20090707
  Receipt Date: 20090707
  Transmission Date: 20100115
  Serious: Yes (Hospitalization, Other)
  Sender: FDA-Public Use
  Company Number: None

PATIENT
  Age: 55 Year
  Sex: Female
  Weight: 83.9154 kg

DRUGS (1)
  1. ACTONEL [Suspect]
     Indication: OSTEOPOROSIS
     Dosage: 35MG ONCE A WEEK PO
     Route: 048
     Dates: start: 20090701, end: 20090701

REACTIONS (3)
  - CARDIAC DISORDER [None]
  - HEPATIC ENZYME INCREASED [None]
  - PAIN [None]
